FAERS Safety Report 4638124-6 (Version None)
Quarter: 2005Q2

REPORT INFORMATION
  Report Type: 
  Country: None (occurrence: None)
  Receive Date: 20050418
  Receipt Date: 20041206
  Transmission Date: 20051028
  Serious: Yes (Hospitalization, Other)
  Sender: FDA-Public Use
  Company Number: PHBS2004JP16521

PATIENT
  Age: 69 Year
  Sex: Female
  Weight: 50 kg

DRUGS (7)
  1. VOLTAREN [Suspect]
     Indication: NASOPHARYNGITIS
     Dosage: 75 MG/DAY
     Route: 048
     Dates: start: 20041108, end: 20041118
  2. ORADOL [Suspect]
     Indication: UPPER RESPIRATORY TRACT INFLAMMATION
     Dosage: 2 MG/DAY
     Route: 048
     Dates: start: 20041108, end: 20041118
  3. NOLEPTAN [Suspect]
     Indication: NASOPHARYNGITIS
     Dosage: 240 MG, QD
     Route: 048
     Dates: start: 20041118, end: 20041118
  4. IPD [Suspect]
     Indication: RHINITIS ALLERGIC
     Dosage: 300 MG, QD
     Route: 048
     Dates: start: 20041108, end: 20041118
  5. MARZULENE S [Suspect]
     Indication: GASTRITIS
     Dosage: 1.5 G/DAY
     Route: 048
     Dates: start: 20041118, end: 20041118
  6. SIMVASTATIN [Suspect]
     Indication: HYPERLIPIDAEMIA
     Dosage: 5 MG/DAY
     Route: 048
     Dates: start: 19950330, end: 20041118
  7. MUNOBAL [Suspect]
     Indication: HYPERTENSION
     Dosage: 10 MG/DAY
     Route: 048
     Dates: start: 19980702, end: 20041118

REACTIONS (10)
  - ALANINE AMINOTRANSFERASE INCREASED [None]
  - ASPARTATE AMINOTRANSFERASE INCREASED [None]
  - BLOOD ALKALINE PHOSPHATASE INCREASED [None]
  - BLOOD LACTATE DEHYDROGENASE INCREASED [None]
  - C-REACTIVE PROTEIN INCREASED [None]
  - GAMMA-GLUTAMYLTRANSFERASE INCREASED [None]
  - HEPATIC FUNCTION ABNORMAL [None]
  - HYPOAESTHESIA [None]
  - JOINT DEPOSIT [None]
  - SPINAL OSTEOARTHRITIS [None]
